FAERS Safety Report 9563882 (Version 2)
Quarter: 2013Q4

REPORT INFORMATION
  Report Type: Spontaneous
  Country: FR (occurrence: FR)
  Receive Date: 20130927
  Receipt Date: 20131031
  Transmission Date: 20140711
  Serious: Yes (Hospitalization)
  Sender: FDA-Public Use
  Company Number: FR-ROCHE-1279809

PATIENT
  Age: 38 Year
  Sex: Female
  Weight: 50 kg

DRUGS (15)
  1. ROACTEMRA [Suspect]
     Indication: RHEUMATOID ARTHRITIS
     Route: 042
     Dates: start: 20100118, end: 20130722
  2. ROACTEMRA [Suspect]
     Route: 041
     Dates: start: 20130408
  3. ROACTEMRA [Suspect]
     Route: 041
     Dates: start: 20130513
  4. ROACTEMRA [Suspect]
     Route: 042
     Dates: start: 20130617
  5. ROACTEMRA [Suspect]
     Route: 042
     Dates: start: 20130722
  6. ARAVA [Concomitant]
     Indication: RHEUMATOID ARTHRITIS
     Route: 048
     Dates: start: 20050224, end: 20130821
  7. EUPANTOL [Concomitant]
     Dosage: 4 VIALS/24 HOURS BY SYRINGE PUMP
     Route: 065
  8. LEVOTHYROX [Concomitant]
     Route: 065
  9. THYROZOL [Concomitant]
     Route: 065
  10. DEBRIDAT [Concomitant]
     Dosage: 3/24 H
     Route: 042
  11. ROCEPHINE [Concomitant]
     Route: 065
  12. FLAGYL [Concomitant]
     Dosage: 3 DF DAILY
     Route: 065
  13. PARACETAMOL [Concomitant]
     Indication: PAIN
     Dosage: 3 DF DAILY
     Route: 065
  14. LOVENOX [Concomitant]
     Dosage: 1 DF DAILY
     Route: 065
  15. SPASFON (FRANCE) [Concomitant]
     Dosage: 6 TABLETS DAILY
     Route: 065

REACTIONS (4)
  - Abscess intestinal [Recovered/Resolved]
  - Small intestinal perforation [Recovered/Resolved]
  - Volvulus of small bowel [Recovered/Resolved]
  - Colitis [Recovered/Resolved]
